FAERS Safety Report 8127116-0 (Version None)
Quarter: 2012Q1

REPORT INFORMATION
  Report Type: 
  Country: None (occurrence: None)
  Receive Date: 20120210
  Receipt Date: 20120202
  Transmission Date: 20120608
  Serious: No
  Sender: FDA-Public Use
  Company Number: US-B.I. PHARMACEUTICALS,INC./RIDGEFIELD-2012-BP-02089BP

PATIENT
  Sex: Female

DRUGS (8)
  1. SPIRIVA [Suspect]
     Indication: CHRONIC OBSTRUCTIVE PULMONARY DISEASE
     Dosage: 18 MCG
     Route: 055
     Dates: start: 20050101
  2. LIDODERM [Concomitant]
     Indication: SPINAL COLUMN STENOSIS
     Route: 061
  3. PULMICORT-100 [Concomitant]
     Indication: ASTHMA
     Route: 055
  4. CELEBREX [Concomitant]
     Indication: OSTEOARTHRITIS
     Dosage: 200 MG
     Route: 048
  5. PROAIR HFA [Concomitant]
     Indication: ASTHMA
     Route: 055
  6. METOCLOPRAMIDE [Concomitant]
     Indication: GASTROOESOPHAGEAL REFLUX DISEASE
     Dosage: 80 MG
     Route: 048
  7. ZOLPIDEM [Concomitant]
     Indication: INSOMNIA
     Dosage: 10 MG
     Route: 048
  8. VALIUM [Concomitant]
     Indication: ANXIETY
     Dosage: 8 MG
     Route: 048

REACTIONS (1)
  - PNEUMONIA [None]
